FAERS Safety Report 9164486 (Version 1)
Quarter: 2013Q1

REPORT INFORMATION
  Report Type: Spontaneous
  Country: US (occurrence: None)
  Receive Date: 20130206
  Receipt Date: 20130206
  Transmission Date: 20140127
  Serious: Yes (Other)
  Sender: FDA-Public Use
  Company Number: DSA_60202_2012

PATIENT
  Sex: Female

DRUGS (1)
  1. XENAZINE (NOT SPECIFIED) [Suspect]
     Indication: DYSKINESIA
     Route: 048
     Dates: start: 201207

REACTIONS (1)
  - Brain neoplasm [None]
